FAERS Safety Report 17483054 (Version 1)
Quarter: 2020Q1

REPORT INFORMATION
  Report Type: Spontaneous
  Country: US (occurrence: US)
  Receive Date: 20200218
  Receipt Date: 20200218
  Transmission Date: 20200409
  Serious: No
  Sender: FDA-Public Use
  Company Number: None

PATIENT
  Age: 19 Year
  Sex: Female

DRUGS (11)
  1. SULFASALAZINE DELAYED-RELEASE [Concomitant]
     Active Substance: SULFASALAZINE
  2. VITAMIN D [Concomitant]
     Active Substance: VITAMIN D NOS
  3. ACTEMRA [Suspect]
     Active Substance: TOCILIZUMAB
     Dosage: ?          OTHER DOSE:162/.9 MG/ML;?
     Route: 058
     Dates: start: 20190821
  4. FOLIC ACID. [Concomitant]
     Active Substance: FOLIC ACID
  5. NABUMETONE. [Concomitant]
     Active Substance: NABUMETONE
  6. RANITIDINE. [Concomitant]
     Active Substance: RANITIDINE
  7. ONDANSETRON [Concomitant]
     Active Substance: ONDANSETRON
  8. TRAMADOL. [Concomitant]
     Active Substance: TRAMADOL
  9. ALBUTEROL. [Concomitant]
     Active Substance: ALBUTEROL
  10. BORAGE [Concomitant]
  11. PREDNISONE. [Concomitant]
     Active Substance: PREDNISONE

REACTIONS (2)
  - Surgery [None]
  - Therapy cessation [None]
